FAERS Safety Report 10166990 (Version 3)
Quarter: 2014Q3

REPORT INFORMATION
  Report Type: Spontaneous
  Country: US (occurrence: None)
  Receive Date: 20140508
  Receipt Date: 20140910
  Transmission Date: 20150326
  Serious: Yes (Hospitalization)
  Sender: FDA-Public Use
  Company Number: UTC-048221

PATIENT
  Age: 65 Year
  Sex: Female
  Weight: 65.3 kg

DRUGS (3)
  1. WARFARIN (WARFARIN) (UNKNOWN) [Concomitant]
  2. ADCIRCA (TADALAFIL) (UNKNOWN) [Concomitant]
  3. TYVASO [Suspect]
     Active Substance: TREPROSTINIL
     Indication: PULMONARY ARTERIAL HYPERTENSION
     Route: 055
     Dates: start: 20140414

REACTIONS (8)
  - Secretion discharge [None]
  - Fluid overload [None]
  - Dyspnoea [None]
  - Decreased appetite [None]
  - Heart rate increased [None]
  - Right ventricular failure [None]
  - Pulmonary oedema [None]
  - Palpitations [None]

NARRATIVE: CASE EVENT DATE: 20140419
